FAERS Safety Report 24575792 (Version 1)
Quarter: 2024Q4

REPORT INFORMATION
  Report Type: Spontaneous
  Country: US (occurrence: None)
  Receive Date: 20241102
  Receipt Date: 20241102
  Transmission Date: 20250115
  Serious: Yes (Hospitalization)
  Sender: Public
  Company Number: None

PATIENT
  Age: 66 Year
  Sex: Female
  Weight: 84.1 kg

DRUGS (2)
  1. CARBOPLATIN [Suspect]
     Active Substance: CARBOPLATIN
     Dates: end: 20241003
  2. TAXOL [Suspect]
     Active Substance: PACLITAXEL
     Dates: end: 20241003

REACTIONS (7)
  - Dizziness [None]
  - Nausea [None]
  - Hypophagia [None]
  - Fluid intake reduced [None]
  - Urine output decreased [None]
  - Dysuria [None]
  - Frequent bowel movements [None]

NARRATIVE: CASE EVENT DATE: 20241018
